FAERS Safety Report 7846769-5 (Version None)
Quarter: 2011Q4

REPORT INFORMATION
  Report Type: 
  Country: None (occurrence: None)
  Receive Date: 20111025
  Receipt Date: 20111019
  Transmission Date: 20120403
  Serious: Yes (Hospitalization)
  Sender: FDA-Public Use
  Company Number: PHHO2011GB17726

PATIENT
  Sex: Male
  Weight: 64 kg

DRUGS (4)
  1. CALCIUM CARBONATE [Concomitant]
  2. ZOLEDRONIC [Suspect]
     Indication: METASTASES TO BONE
     Dosage: 3 MG, UNK
     Route: 042
     Dates: start: 20110418, end: 20110919
  3. HORMONES [Concomitant]
     Dosage: 10.3 NG, UNK
     Route: 058
     Dates: start: 20110221
  4. VITAMIN D [Concomitant]

REACTIONS (2)
  - PRESYNCOPE [None]
  - RENAL FAILURE [None]
